FAERS Safety Report 8966547 (Version 2)
Quarter: 2013Q1

REPORT INFORMATION
  Report Type: Spontaneous
  Country: US (occurrence: US)
  Receive Date: 20121214
  Receipt Date: 20130207
  Transmission Date: 20140127
  Serious: No
  Sender: FDA-Public Use
  Company Number: US-ASTRAZENECA-2012SE91966

PATIENT
  Age: 65 Year
  Sex: Female

DRUGS (21)
  1. SEROQUEL XR [Suspect]
     Indication: AGITATION
     Route: 048
  2. SEROQUEL XR [Suspect]
     Indication: AGITATION
     Route: 048
     Dates: start: 20120423, end: 20121105
  3. SEROQUEL XR [Suspect]
     Indication: AGITATION
     Route: 048
  4. ATENOLOL [Suspect]
     Route: 048
  5. TOPROL XL [Suspect]
     Route: 048
  6. LAMICTAL [Concomitant]
     Indication: AFFECTIVE DISORDER
     Route: 048
     Dates: start: 20120423
  7. LOXAPINE [Concomitant]
     Route: 048
  8. TRAZODONE [Concomitant]
     Route: 048
  9. TRAZODONE [Concomitant]
     Dosage: AS REQUIRED
     Route: 048
     Dates: start: 20120423
  10. LORAZEPAM [Concomitant]
     Indication: ANXIETY
     Dosage: 0.5 MG, 1-2, BEFORE
     Dates: start: 20111125
  11. VIT D3 [Concomitant]
     Dosage: 1000 IU, EVERY DAY
  12. MAGNESIUM OXIDE [Concomitant]
  13. LASIX [Concomitant]
  14. LIPITOR [Concomitant]
  15. LANTUS [Concomitant]
  16. NOVOLOG [Concomitant]
  17. SYNTHROID [Concomitant]
  18. PAVACID [Concomitant]
  19. MIRALAX [Concomitant]
     Dosage: EVERY DAY
  20. ACCUPRIL [Concomitant]
  21. QUINAPRIL [Concomitant]

REACTIONS (2)
  - Metabolic syndrome [Unknown]
  - Decreased appetite [Unknown]
